FAERS Safety Report 5247200-9 (Version None)
Quarter: 2007Q1

REPORT INFORMATION
  Report Type: 
  Country: None (occurrence: None)
  Receive Date: 20070221
  Receipt Date: 20070214
  Transmission Date: 20070707
  Serious: Yes (Other)
  Sender: FDA-Public Use
  Company Number: 1022556-2007-00034

PATIENT
  Age: 52 Year
  Sex: Female

DRUGS (4)
  1. UNISOM [Suspect]
     Indication: SLEEP DISORDER
     Dosage: 1 TABLET DSILY
     Dates: start: 20070101
  2. LEXAPRO [Suspect]
     Indication: DEPRESSION
     Dosage: 20 MG DAILY
     Dates: start: 20060901
  3. TRAZODONE HCL [Concomitant]
  4. TYLENOL SIMPLY SLEEP (DIPHENHYDRAMINE) [Concomitant]

REACTIONS (4)
  - ABNORMAL FAECES [None]
  - ANXIETY [None]
  - DEPRESSION [None]
  - DRUG INTERACTION [None]
